FAERS Safety Report 6869339-4 (Version None)
Quarter: 2010Q3

REPORT INFORMATION
  Report Type: 
  Country: None (occurrence: None)
  Receive Date: 20100722
  Receipt Date: 20080926
  Transmission Date: 20110219
  Serious: Yes (Other)
  Sender: FDA-Public Use
  Company Number: US-PFIZER INC-2008060740

PATIENT
  Sex: Female

DRUGS (1)
  1. CHANTIX [Suspect]
     Indication: SMOKING CESSATION THERAPY
     Dates: start: 20080101, end: 20080101

REACTIONS (6)
  - ANXIETY [None]
  - DEPRESSION [None]
  - GASTROINTESTINAL PAIN [None]
  - NIGHTMARE [None]
  - SLEEP DISORDER [None]
  - STRESS [None]
